FAERS Safety Report 13768854 (Version 1)
Quarter: 2017Q3

REPORT INFORMATION
  Report Type: Spontaneous
  Country: DE (occurrence: DE)
  Receive Date: 20170719
  Receipt Date: 20170719
  Transmission Date: 20171127
  Serious: Yes (Life-Threatening)
  Sender: FDA-Public Use
  Company Number: DE-FRESENIUS KABI-FK201705976

PATIENT
  Age: 55 Year
  Sex: Female

DRUGS (1)
  1. CEFUROXIM FRESENIUS [Suspect]
     Active Substance: CEFUROXIME
     Indication: PRODUCT USED FOR UNKNOWN INDICATION
     Route: 042

REACTIONS (1)
  - Anaphylactic shock [Recovered/Resolved]
